FAERS Safety Report 25169408 (Version 1)
Quarter: 2025Q2

REPORT INFORMATION
  Report Type: Report from Study
  Country: GB (occurrence: GB)
  Receive Date: 20250407
  Receipt Date: 20250407
  Transmission Date: 20250716
  Serious: Yes (Hospitalization)
  Sender: TEVA
  Company Number: GB-TEVA-VS-3316966

PATIENT
  Age: 57 Year
  Sex: Male

DRUGS (1)
  1. OCTREOTIDE [Suspect]
     Active Substance: OCTREOTIDE
     Indication: Product used for unknown indication
     Route: 065

REACTIONS (1)
  - Condition aggravated [Unknown]
